FAERS Safety Report 7622174-1 (Version None)
Quarter: 2011Q3

REPORT INFORMATION
  Report Type: 
  Country: None (occurrence: None)
  Receive Date: 20110720
  Receipt Date: 20110526
  Transmission Date: 20111222
  Serious: Yes (Hospitalization, Other)
  Sender: FDA-Public Use
  Company Number: US-BAYER-201029488NA

PATIENT
  Age: 21 Year
  Sex: Female
  Weight: 87.982 kg

DRUGS (13)
  1. DROSPIRENONE AND ETHINYL ESTRADIOL [Suspect]
     Indication: ACNE
     Dosage: UNK
  2. ZITHROMAX [Concomitant]
     Indication: SINUSITIS
  3. CIPROFLOXACIN HCL [Concomitant]
     Dosage: 250 MG, BID
  4. ALLEGRA [Concomitant]
     Dosage: 180 MG, QD
  5. YAZ [Suspect]
     Indication: ACNE
     Dosage: UNK MG, UNK
     Dates: start: 20020101, end: 20090101
  6. CONCERTA [Concomitant]
  7. SINGULAIR [Concomitant]
     Dosage: 10 MG, QD
  8. ZYRTEC [Concomitant]
     Dosage: 10 MG, OM
  9. ADVAIR DISKUS 100/50 [Concomitant]
  10. FLONASE [Concomitant]
     Dosage: 50 ?G, UNK
  11. BIAXIN [Concomitant]
     Dosage: 500 MG, BID
  12. OMEPRAZOLE [Concomitant]
     Dosage: 20 MG, BID
  13. YASMIN [Suspect]
     Indication: ACNE
     Dosage: UNK MG, UNK

REACTIONS (4)
  - CHOLESTEROSIS [None]
  - ABDOMINAL PAIN UPPER [None]
  - CHOLECYSTITIS CHRONIC [None]
  - CHOLELITHIASIS [None]
